FAERS Safety Report 11795284 (Version 3)
Quarter: 2016Q1

REPORT INFORMATION
  Report Type: Report from Study
  Country: US (occurrence: US)
  Receive Date: 20151117
  Receipt Date: 20160323
  Transmission Date: 20160525
  Serious: Yes (Hospitalization, Other)
  Sender: FDA-Public Use
  Company Number: US-JNJFOC-20151110066

PATIENT
  Age: 58 Year
  Sex: Male
  Weight: 100.25 kg

DRUGS (2)
  1. LANTUS [Concomitant]
     Active Substance: INSULIN GLARGINE
     Indication: DIABETES MELLITUS
     Dosage: 100 UNITS
     Route: 065
     Dates: start: 2005
  2. STELARA [Suspect]
     Active Substance: USTEKINUMAB
     Indication: PSORIASIS
     Route: 058
     Dates: start: 20151031, end: 20151115

REACTIONS (13)
  - Illusion [Recovered/Resolved]
  - Balance disorder [Unknown]
  - Visual impairment [Recovered/Resolved]
  - Chronic sinusitis [Recovered/Resolved]
  - Photophobia [Recovered/Resolved]
  - Disorientation [Recovered/Resolved]
  - Weight decreased [Recovered/Resolved]
  - Infection [Recovered/Resolved]
  - Hypersensitivity [Recovered/Resolved]
  - Confusional state [Recovered/Resolved]
  - Amnesia [Recovered/Resolved]
  - Cold sweat [Recovered/Resolved]
  - Migraine [Recovered/Resolved]

NARRATIVE: CASE EVENT DATE: 20151105
